FAERS Safety Report 10417949 (Version 1)
Quarter: 2014Q2

REPORT INFORMATION
  Report Type: Spontaneous
  Country: US (occurrence: None)
  Receive Date: 20140609
  Receipt Date: 20140609
  Transmission Date: 20141212
  Serious: No
  Sender: FDA-Public Use
  Company Number: 2014TUS001426

PATIENT
  Age: 44 Year
  Sex: Female

DRUGS (1)
  1. BRINTELLIX (VORTIOXETINE) TABLET, 10MG [Suspect]
     Indication: MAJOR DEPRESSION
     Dosage: 2  TABLETS
     Route: 048

REACTIONS (2)
  - Chest pain [None]
  - Muscle tightness [None]
